FAERS Safety Report 24581221 (Version 3)
Quarter: 2025Q3

REPORT INFORMATION
  Report Type: Spontaneous
  Country: GB (occurrence: GB)
  Receive Date: 20241105
  Receipt Date: 20250822
  Transmission Date: 20251021
  Serious: Yes (Life-Threatening, Hospitalization, Other)
  Sender: TORRENT PHARMA INC.
  Company Number: None

PATIENT
  Age: 17 Year
  Sex: Female
  Weight: 57 kg

DRUGS (1)
  1. LAMOTRIGINE [Suspect]
     Active Substance: LAMOTRIGINE
     Indication: Partial seizures
     Dosage: 25 MG, BID (DOSE TO INCREASE TO 50MG ON DAY 14)
     Route: 048
     Dates: start: 20211115, end: 20211129

REACTIONS (38)
  - Stevens-Johnson syndrome [Recovering/Resolving]
  - Lip dry [Recovering/Resolving]
  - Eye pain [Recovering/Resolving]
  - Conjunctivitis [Recovering/Resolving]
  - Eyelid erosion [Recovering/Resolving]
  - Cheilitis [Recovering/Resolving]
  - Macule [Recovering/Resolving]
  - Blepharospasm [Recovering/Resolving]
  - Influenza [Recovering/Resolving]
  - Lip erythema [Recovering/Resolving]
  - Pruritus [Recovering/Resolving]
  - Hypothermia [Recovering/Resolving]
  - Blindness [Recovering/Resolving]
  - Illness [Recovering/Resolving]
  - Asthenia [Recovering/Resolving]
  - Oropharyngeal pain [Recovering/Resolving]
  - Chapped lips [Recovering/Resolving]
  - Keratitis [Recovering/Resolving]
  - Pyrexia [Recovering/Resolving]
  - Ulcerative keratitis [Recovering/Resolving]
  - Mucosal inflammation [Recovering/Resolving]
  - Product packaging confusion [Unknown]
  - Toxic epidermal necrolysis [Recovering/Resolving]
  - Sepsis [Unknown]
  - Skin exfoliation [Recovering/Resolving]
  - Coma [Recovering/Resolving]
  - Blister [Recovering/Resolving]
  - Malaise [Recovering/Resolving]
  - Pain [Recovering/Resolving]
  - Blindness unilateral [Not Recovered/Not Resolved]
  - Onycholysis [Recovering/Resolving]
  - Lip swelling [Recovering/Resolving]
  - Ocular hyperaemia [Recovering/Resolving]
  - Cataract [Recovering/Resolving]
  - Mouth ulceration [Recovering/Resolving]
  - Vision blurred [Not Recovered/Not Resolved]
  - Rash [Recovering/Resolving]
  - Eye pruritus [Recovering/Resolving]

NARRATIVE: CASE EVENT DATE: 20211123
